FAERS Safety Report 19012910 (Version 1)
Quarter: 2021Q1

REPORT INFORMATION
  Report Type: Spontaneous
  Country: HU (occurrence: HU)
  Receive Date: 20210315
  Receipt Date: 20210315
  Transmission Date: 20210420
  Serious: Yes (Other)
  Sender: FDA-Public Use
  Company Number: HU-BAUSCH-BL-2021-008927

PATIENT
  Age: 80 Year
  Sex: Male

DRUGS (3)
  1. SUPPLIN [Concomitant]
     Indication: DIVERTICULITIS
     Route: 048
     Dates: start: 20201122, end: 20201201
  2. CIPROFLOXACIN. [Concomitant]
     Active Substance: CIPROFLOXACIN
     Indication: DIVERTICULITIS
     Dates: start: 20201122, end: 20201201
  3. NORMIX [Suspect]
     Active Substance: RIFAXIMIN
     Indication: DIVERTICULITIS
     Route: 048
     Dates: start: 20201122, end: 20201205

REACTIONS (1)
  - Pancytopenia [Unknown]

NARRATIVE: CASE EVENT DATE: 2020
